FAERS Safety Report 21004153 (Version 2)
Quarter: 2022Q3

REPORT INFORMATION
  Report Type: Spontaneous
  Country: US (occurrence: US)
  Receive Date: 20220624
  Receipt Date: 20220831
  Transmission Date: 20221027
  Serious: No
  Sender: FDA-Public Use
  Company Number: US-KARYOPHARM-2022KPT000657

PATIENT

DRUGS (15)
  1. XPOVIO [Suspect]
     Active Substance: SELINEXOR
     Indication: Plasma cell myeloma
     Dosage: 60 MG, WEEKLY
     Route: 048
     Dates: start: 20220526, end: 20220726
  2. CARVEDILOL [Concomitant]
     Active Substance: CARVEDILOL
  3. SIMVASTATIN [Concomitant]
     Active Substance: SIMVASTATIN
  4. FENOFIBRATE [Concomitant]
     Active Substance: FENOFIBRATE
  5. BENAZEPRIL [Concomitant]
     Active Substance: BENAZEPRIL HYDROCHLORIDE
  6. FUROSEMIDE [Concomitant]
     Active Substance: FUROSEMIDE
  7. VALTREX [Concomitant]
     Active Substance: VALACYCLOVIR HYDROCHLORIDE
  8. MONTELUKAST [Concomitant]
     Active Substance: MONTELUKAST SODIUM
  9. ELIQUIS [Concomitant]
     Active Substance: APIXABAN
  10. VASCEPA [Concomitant]
     Active Substance: ICOSAPENT ETHYL
  11. LEVOTHYROXINE [Concomitant]
     Active Substance: LEVOTHYROXINE
  12. TEMAZEPAM [Concomitant]
     Active Substance: TEMAZEPAM
  13. EZETIMIBE [Concomitant]
     Active Substance: EZETIMIBE
  14. DEXAMETHASONE [Concomitant]
     Active Substance: DEXAMETHASONE
  15. ONDANSETRON [Concomitant]
     Active Substance: ONDANSETRON

REACTIONS (2)
  - Dysgeusia [Unknown]
  - Plasma cell myeloma [Unknown]

NARRATIVE: CASE EVENT DATE: 20220101
